FAERS Safety Report 7869192-6 (Version None)
Quarter: 2011Q4

REPORT INFORMATION
  Report Type: 
  Country: None (occurrence: None)
  Receive Date: 20111024
  Receipt Date: 20111017
  Transmission Date: 20120403
  Serious: Yes (Hospitalization, Other)
  Sender: FDA-Public Use
  Company Number: 2011SP001281

PATIENT
  Age: 43 Year
  Sex: Female
  Weight: 88.4514 kg

DRUGS (9)
  1. PROPRANOLOL [Concomitant]
  2. LEVOTHYROXINE SODIUM [Concomitant]
  3. DIAZEPAM [Concomitant]
  4. ZYPREXA [Concomitant]
  5. MIRTAZAPINE [Concomitant]
  6. LYRICA [Concomitant]
  7. NUVARING [Suspect]
     Indication: CONTRACEPTION
     Dosage: VAG
     Route: 067
     Dates: start: 20080724, end: 20080905
  8. NUVARING [Suspect]
     Indication: MENSTRUATION IRREGULAR
     Dosage: VAG
     Route: 067
     Dates: start: 20080724, end: 20080905
  9. SEROQUEL [Concomitant]

REACTIONS (13)
  - TREMOR [None]
  - BLOOD CHOLESTEROL INCREASED [None]
  - PSORIASIS [None]
  - PULMONARY EMBOLISM [None]
  - LIGAMENT RUPTURE [None]
  - DIABETES MELLITUS [None]
  - TARDIVE DYSKINESIA [None]
  - PELVIC PAIN [None]
  - IRRITABLE BOWEL SYNDROME [None]
  - PROCEDURAL PAIN [None]
  - DEEP VEIN THROMBOSIS [None]
  - BARTHOLIN'S CYST [None]
  - MENOMETRORRHAGIA [None]
